FAERS Safety Report 11421616 (Version 2)
Quarter: 2015Q3

REPORT INFORMATION
  Report Type: Report from Study
  Country: CN (occurrence: CN)
  Receive Date: 20150826
  Receipt Date: 20150925
  Transmission Date: 20151125
  Serious: Yes (Other)
  Sender: FDA-Public Use
  Company Number: CN-ROCHE-1546751

PATIENT
  Sex: Male
  Weight: 50 kg

DRUGS (1)
  1. AVASTIN [Suspect]
     Active Substance: BEVACIZUMAB
     Indication: RECTAL CANCER METASTATIC
     Route: 041
     Dates: start: 20140408

REACTIONS (5)
  - Decreased appetite [Unknown]
  - Penile curvature [Unknown]
  - Asthenia [Unknown]
  - Abdominal pain upper [Unknown]
  - Rash [Unknown]
